FAERS Safety Report 17834300 (Version 2)
Quarter: 2020Q3

REPORT INFORMATION
  Report Type: Spontaneous
  Country: US (occurrence: US)
  Receive Date: 20200528
  Receipt Date: 20200810
  Transmission Date: 20201103
  Serious: Yes (Other)
  Sender: FDA-Public Use
  Company Number: US-SA-2020SA134338

PATIENT

DRUGS (20)
  1. CIMETIDINE [Concomitant]
     Active Substance: CIMETIDINE
  2. ATIVAN [Concomitant]
     Active Substance: LORAZEPAM
  3. TAMOXIFEN [Concomitant]
     Active Substance: TAMOXIFEN
  4. NEULASTA [Concomitant]
     Active Substance: PEGFILGRASTIM
  5. PREMARIN [Concomitant]
     Active Substance: ESTROGENS, CONJUGATED
     Dosage: UNK
     Dates: start: 2006, end: 2008
  6. LAMICTAL [Concomitant]
     Active Substance: LAMOTRIGINE
  7. LEVOTHYROXINE. [Concomitant]
     Active Substance: LEVOTHYROXINE
     Dosage: UNK
     Dates: start: 2000
  8. AMOXICILLIN. [Concomitant]
     Active Substance: AMOXICILLIN
  9. TAXOTERE [Suspect]
     Active Substance: DOCETAXEL
     Indication: BREAST CANCER FEMALE
     Dosage: 75 MG/M2, QW
     Route: 042
     Dates: start: 20080219, end: 20080219
  10. SIMVASTATIN. [Concomitant]
     Active Substance: SIMVASTATIN
     Dosage: UNK
     Dates: start: 2005
  11. NEOSAR [Concomitant]
     Active Substance: CYCLOPHOSPHAMIDE
     Indication: BREAST CANCER FEMALE
  12. ACIPHEX [Concomitant]
     Active Substance: RABEPRAZOLE SODIUM
     Dosage: UNK
     Dates: start: 2005, end: 2010
  13. CYTOXAN [Concomitant]
     Active Substance: CYCLOPHOSPHAMIDE
     Dosage: 1140 MG
     Route: 042
     Dates: start: 20080422, end: 20080422
  14. DECADRON [Concomitant]
     Active Substance: DEXAMETHASONE
  15. ROBAXIN [Concomitant]
     Active Substance: METHOCARBAMOL
  16. LEVOXYL [Concomitant]
     Active Substance: LEVOTHYROXINE SODIUM
  17. TAXOTERE [Suspect]
     Active Substance: DOCETAXEL
     Dosage: 75 MG/M2, QW
     Route: 042
     Dates: start: 20080422, end: 20080422
  18. CYTOXAN [Concomitant]
     Active Substance: CYCLOPHOSPHAMIDE
     Indication: BREAST CANCER FEMALE
     Dosage: 1140 MG
     Route: 042
     Dates: start: 20080219, end: 20080219
  19. ALOXI [Concomitant]
     Active Substance: PALONOSETRON HYDROCHLORIDE
  20. LOVAZA [Concomitant]
     Active Substance: OMEGA-3-ACID ETHYL ESTERS

REACTIONS (4)
  - Impaired quality of life [Not Recovered/Not Resolved]
  - Alopecia [Not Recovered/Not Resolved]
  - Emotional distress [Not Recovered/Not Resolved]
  - Anxiety [Not Recovered/Not Resolved]

NARRATIVE: CASE EVENT DATE: 2008
